FAERS Safety Report 6529706-5 (Version None)
Quarter: 2010Q1

REPORT INFORMATION
  Report Type: 
  Country: None (occurrence: None)
  Receive Date: 20100107
  Receipt Date: 20091231
  Transmission Date: 20100710
  Serious: Yes (Hospitalization)
  Sender: FDA-Public Use
  Company Number: GB-PFIZER INC-2008045176

PATIENT
  Sex: Male

DRUGS (4)
  1. HYDROXYZINE HCL [Suspect]
     Indication: PRURITUS
     Dosage: 25 MG, 4X/DAY
     Route: 048
     Dates: start: 20071107, end: 20071121
  2. CETIRIZINE HCL [Suspect]
     Indication: PRURITUS
     Dosage: 10 MG, UNK
     Route: 048
     Dates: start: 20071115, end: 20071121
  3. ACITRETIN [Suspect]
     Indication: KERATOSIS FOLLICULAR
     Dosage: 10 MG, UNK
     Dates: start: 20071110, end: 20080108
  4. ZOPICLONE [Concomitant]
     Indication: INSOMNIA
     Dosage: 7.5 MG, UNK
     Route: 048
     Dates: start: 20071108, end: 20071127

REACTIONS (3)
  - CONDITION AGGRAVATED [None]
  - DRUG INEFFECTIVE [None]
  - RASH [None]
